FAERS Safety Report 9092321 (Version 1)
Quarter: 2013Q1

REPORT INFORMATION
  Report Type: Spontaneous
  Country: BR (occurrence: BR)
  Receive Date: 20130131
  Receipt Date: 20130131
  Transmission Date: 20140127
  Serious: Yes (Hospitalization)
  Sender: FDA-Public Use
  Company Number: BR-ABBOTT-13P-020-1042654-00

PATIENT
  Age: 15 Year
  Sex: Male
  Weight: 76 kg

DRUGS (1)
  1. HUMIRA [Suspect]
     Indication: JUVENILE IDIOPATHIC ARTHRITIS
     Route: 058
     Dates: start: 20120430, end: 20130122

REACTIONS (2)
  - Pain [Not Recovered/Not Resolved]
  - Dengue fever [Not Recovered/Not Resolved]
